FAERS Safety Report 22155862 (Version 1)
Quarter: 2023Q1

REPORT INFORMATION
  Report Type: Spontaneous
  Country: US (occurrence: US)
  Receive Date: 20230330
  Receipt Date: 20230330
  Transmission Date: 20230418
  Serious: No
  Sender: FDA-Public Use
  Company Number: US-PERRIGO-22US006050

PATIENT
  Age: 30 Year
  Sex: Male
  Weight: 106.58 kg

DRUGS (3)
  1. DEXTROMETHORPHAN HYDROBROMIDE\GUAIFENESIN [Suspect]
     Active Substance: DEXTROMETHORPHAN HYDROBROMIDE\GUAIFENESIN
     Indication: Cough
     Dosage: 1 TABLET, QAM
     Route: 048
     Dates: start: 20220324, end: 20220420
  2. DEXTROMETHORPHAN HYDROBROMIDE\GUAIFENESIN [Suspect]
     Active Substance: DEXTROMETHORPHAN HYDROBROMIDE\GUAIFENESIN
     Indication: Sputum discoloured
  3. ALEVE [Concomitant]
     Active Substance: NAPROXEN SODIUM
     Indication: Inflammation
     Dosage: UNK
     Route: 065
     Dates: start: 20220324

REACTIONS (3)
  - Drug ineffective [Unknown]
  - Incorrect product administration duration [Recovered/Resolved]
  - Inappropriate schedule of product administration [Recovered/Resolved]

NARRATIVE: CASE EVENT DATE: 20220324
